FAERS Safety Report 5909004-0 (Version None)
Quarter: 2008Q4

REPORT INFORMATION
  Report Type: 
  Country: None (occurrence: None)
  Receive Date: 20081006
  Receipt Date: 20080923
  Transmission Date: 20090506
  Serious: Yes (Hospitalization, Other)
  Sender: FDA-Public Use
  Company Number: DE-ROCHE-588395

PATIENT
  Sex: Female

DRUGS (2)
  1. PEGASYS [Suspect]
     Route: 065
     Dates: end: 20080201
  2. RIBAVIRIN [Suspect]
     Route: 065
     Dates: end: 20080201

REACTIONS (5)
  - BLOOD CREATININE INCREASED [None]
  - GLOMERULAR FILTRATION RATE ABNORMAL [None]
  - GLOMERULONEPHRITIS [None]
  - HYPOCHROMIC ANAEMIA [None]
  - NEPHROTIC SYNDROME [None]
